FAERS Safety Report 8529955-0 (Version None)
Quarter: 2012Q3

REPORT INFORMATION
  Report Type: 
  Country: None (occurrence: None)
  Receive Date: 20120723
  Receipt Date: 20120713
  Transmission Date: 20120928
  Serious: Yes (Hospitalization, Other)
  Sender: FDA-Public Use
  Company Number: IT-BRISTOL-MYERS SQUIBB COMPANY-16700213

PATIENT
  Age: 70 Year
  Sex: Male

DRUGS (16)
  1. ALFUZOSIN HCL [Suspect]
  2. PHENYTOIN SODIUM [Suspect]
     Indication: CONVULSION
     Dosage: 1 DF = 4 DOSES/DAY STRENGTH:250MG/5ML
     Route: 042
     Dates: start: 20120516, end: 20120529
  3. ACYCLOVIR [Suspect]
     Indication: CONVULSION
     Route: 048
     Dates: start: 20120516, end: 20120606
  4. PROSTIGMINA [Suspect]
     Dosage: 1DF=0.5MG/ML.
  5. LANTUS [Suspect]
     Route: 058
  6. OMEPRAZOLE [Suspect]
     Route: 048
  7. MERREM [Suspect]
     Indication: ENCEPHALITIS
     Route: 042
     Dates: start: 20120529, end: 20120531
  8. ENOXAPARIN SODIUM [Suspect]
     Dosage: 1 DOSE
     Route: 058
  9. LASIX [Suspect]
     Dosage: 3 DOSES
     Route: 042
  10. OMNIPAQUE 140 [Suspect]
     Indication: COMPUTERISED TOMOGRAM
     Dates: start: 20120529
  11. ACETYLSALICYLIC ACID SRT [Suspect]
     Route: 048
  12. KEPPRA [Suspect]
     Indication: CONVULSION
     Dosage: 2 DOSES
     Route: 048
     Dates: start: 20120519, end: 20120606
  13. AMPICILLIN [Suspect]
     Indication: ENCEPHALITIS
     Route: 042
     Dates: start: 20120519, end: 20120529
  14. GLICOREST [Suspect]
     Dosage: 3 DOSES
     Route: 048
  15. CALCIUM GLUCONATE [Suspect]
  16. DECADRON [Suspect]

REACTIONS (2)
  - DRUG LEVEL INCREASED [None]
  - RASH MACULO-PAPULAR [None]
